FAERS Safety Report 9437995 (Version 1)
Quarter: 2013Q3

REPORT INFORMATION
  Report Type: Spontaneous
  Country: US (occurrence: US)
  Receive Date: 20130802
  Receipt Date: 20130802
  Transmission Date: 20140515
  Serious: No
  Sender: FDA-Public Use
  Company Number: US-BRISTOL-MYERS SQUIBB COMPANY-18818070

PATIENT
  Age: 84 Year
  Sex: Female
  Weight: 67.12 kg

DRUGS (8)
  1. WARFARIN SODIUM [Suspect]
     Indication: CEREBROVASCULAR ACCIDENT
  2. PLAVIX [Suspect]
     Indication: CEREBROVASCULAR ACCIDENT
  3. LASIX [Concomitant]
  4. ISOSORBIDE [Concomitant]
  5. AMIODARONE [Concomitant]
  6. CALCIUM [Concomitant]
  7. PRAVASTATIN SODIUM [Concomitant]
  8. RANITIDINE [Concomitant]

REACTIONS (1)
  - Hypertension [Unknown]
